FAERS Safety Report 7537074-5 (Version None)
Quarter: 2011Q2

REPORT INFORMATION
  Report Type: 
  Country: None (occurrence: None)
  Receive Date: 20110609
  Receipt Date: 20110527
  Transmission Date: 20111010
  Serious: Yes (Hospitalization, Other)
  Sender: FDA-Public Use
  Company Number: PHHY2011BR46503

PATIENT
  Sex: Male

DRUGS (4)
  1. PHENYTOIN [Concomitant]
     Dosage: 100 MG, UNK
  2. PHENYTOIN [Concomitant]
     Indication: CEREBROVASCULAR ACCIDENT
  3. EXFORGE [Suspect]
     Indication: HYPERTENSION
     Dosage: 160 MG VALS AND 5 MG AMLO, 1 DF, PER DAY
     Route: 048
  4. EXFORGE [Suspect]
     Dosage: 160 MG VALS AND 5 MG AMLO, 1 DF, PER DAY
     Route: 048
     Dates: start: 20110401

REACTIONS (5)
  - CONVULSION [None]
  - HYPERTENSION [None]
  - MALAISE [None]
  - BLOOD CHOLESTEROL INCREASED [None]
  - BLOOD TRIGLYCERIDES INCREASED [None]
